FAERS Safety Report 4379185-1 (Version None)
Quarter: 2004Q2

REPORT INFORMATION
  Report Type: 
  Country: None (occurrence: None)
  Receive Date: 20040610
  Receipt Date: 20040528
  Transmission Date: 20050107
  Serious: Yes (Hospitalization)
  Sender: FDA-Public Use
  Company Number: HQWYE260504JUN04

PATIENT
  Sex: Female

DRUGS (3)
  1. PREMPRO [Suspect]
     Dosage: ORAL
     Route: 048
     Dates: start: 19810101, end: 20010101
  2. CYCRIN [Suspect]
     Dates: start: 19810101, end: 20010101
  3. PREMARIN [Suspect]
     Dosage: ORAL
     Route: 048
     Dates: start: 19810101, end: 20010101

REACTIONS (2)
  - INTRACARDIAC THROMBUS [None]
  - MYOCARDIAL INFARCTION [None]
